FAERS Safety Report 7078929-8 (Version None)
Quarter: 2010Q4

REPORT INFORMATION
  Report Type: 
  Country: None (occurrence: None)
  Receive Date: 20101102
  Receipt Date: 20101027
  Transmission Date: 20110411
  Serious: No
  Sender: FDA-Public Use
  Company Number: US-PFIZER INC-2010137121

PATIENT
  Sex: Male
  Weight: 89.796 kg

DRUGS (4)
  1. VIAGRA [Suspect]
     Dosage: 50 MG, UNK
     Route: 048
     Dates: start: 20060101, end: 20100101
  2. VIAGRA [Suspect]
     Dosage: UNK MG, UNK
     Route: 048
  3. TENORMIN [Concomitant]
     Indication: HYPERTENSION
     Dosage: 35 MG, 1X/DAY
     Route: 048
  4. LIPITOR [Concomitant]
     Indication: BLOOD CHOLESTEROL INCREASED
     Dosage: 10 MG, 1X/DAY
     Route: 048

REACTIONS (3)
  - ERYTHEMA [None]
  - FLUSHING [None]
  - ROSACEA [None]
